FAERS Safety Report 9324535 (Version 3)
Quarter: 2014Q1

REPORT INFORMATION
  Report Type: Spontaneous
  Country: US (occurrence: US)
  Receive Date: 20130603
  Receipt Date: 20140228
  Transmission Date: 20141002
  Serious: Yes (Hospitalization)
  Sender: FDA-Public Use
  Company Number: US-B.I. PHARMACEUTICALS,INC./RIDGEFIELD-2013-BI-15152BP

PATIENT
  Sex: Male
  Weight: 78.02 kg

DRUGS (10)
  1. PRADAXA [Suspect]
     Indication: ATRIAL FIBRILLATION
     Dosage: 150 MG
     Route: 065
     Dates: start: 20111128, end: 20120107
  2. ASPIRIN [Suspect]
     Indication: CORONARY ARTERY DISEASE
     Dosage: 81 MG
     Route: 065
     Dates: end: 20120107
  3. COREG [Concomitant]
     Indication: ISCHAEMIC CARDIOMYOPATHY
     Dosage: 2.125 MG
     Route: 065
  4. LISINOPRIL [Concomitant]
     Indication: ISCHAEMIC CARDIOMYOPATHY
     Dosage: 5 MG
     Route: 065
  5. LEVOXYL [Concomitant]
     Route: 065
  6. ALPRAZOLAM [Concomitant]
     Route: 065
  7. SIMVASTATIN [Concomitant]
     Indication: HYPERLIPIDAEMIA
     Dosage: 20 MG
     Route: 065
  8. NIACIN [Concomitant]
     Indication: HYPERLIPIDAEMIA
     Dosage: 1000 MG
     Route: 065
  9. PREDNISONE [Concomitant]
     Indication: OSTEOARTHRITIS
     Dosage: 2.5 MG
     Route: 065
  10. IRON [Concomitant]
     Dosage: 325 MG
     Route: 065

REACTIONS (5)
  - Gastrointestinal haemorrhage [Unknown]
  - Epistaxis [Unknown]
  - Haemorrhagic anaemia [Unknown]
  - Coagulopathy [Unknown]
  - Renal failure acute [Unknown]
